FAERS Safety Report 10574292 (Version 1)
Quarter: 2014Q4

REPORT INFORMATION
  Report Type: Report from Study
  Country: US (occurrence: US)
  Receive Date: 20141110
  Receipt Date: 20141110
  Transmission Date: 20150529
  Serious: Yes (Other)
  Sender: FDA-Public Use
  Company Number: US-BRISTOL-MYERS SQUIBB COMPANY-21545488

PATIENT
  Age: 6 Year
  Sex: Female
  Weight: 20.41 kg

DRUGS (1)
  1. ORENCIA [Suspect]
     Active Substance: ABATACEPT
     Indication: JUVENILE IDIOPATHIC ARTHRITIS
     Dosage: SECOND INFUSION: 29-SEP-2014?THIRD INFUSION: 06-OCT-2014 OR 13-OCT-2014.
     Route: 042
     Dates: start: 20140915

REACTIONS (4)
  - Headache [Unknown]
  - Contusion [Unknown]
  - Areflexia [Unknown]
  - Fall [Unknown]
